FAERS Safety Report 6809482-9 (Version None)
Quarter: 2010Q2

REPORT INFORMATION
  Report Type: 
  Country: None (occurrence: None)
  Receive Date: 20100630
  Receipt Date: 20100623
  Transmission Date: 20101027
  Serious: Yes (Death)
  Sender: FDA-Public Use
  Company Number: DE-BRISTOL-MYERS SQUIBB COMPANY-15170723

PATIENT

DRUGS (3)
  1. LOMUSTINE [Suspect]
  2. TEMOZOLOMIDE [Suspect]
  3. RADIOTHERAPY [Suspect]

REACTIONS (2)
  - BONE MARROW FAILURE [None]
  - SEPSIS [None]
